FAERS Safety Report 21759431 (Version 2)
Quarter: 2023Q1

REPORT INFORMATION
  Report Type: Spontaneous
  Country: DE (occurrence: DE)
  Receive Date: 20221221
  Receipt Date: 20230109
  Transmission Date: 20230418
  Serious: Yes (Life-Threatening, Other)
  Sender: FDA-Public Use
  Company Number: DE-BoehringerIngelheim-2022-BI-195455

PATIENT
  Age: 68 Year
  Sex: Male

DRUGS (3)
  1. JARDIANCE [Suspect]
     Active Substance: EMPAGLIFLOZIN
     Indication: Cardiac failure
  2. JARDIANCE [Suspect]
     Active Substance: EMPAGLIFLOZIN
     Indication: Type 2 diabetes mellitus
  3. BISOPROLOL [Concomitant]
     Active Substance: BISOPROLOL
     Indication: Hypertension
     Route: 048

REACTIONS (7)
  - Cardiac failure [Recovered/Resolved]
  - Hypertension [Recovered/Resolved]
  - Ketoacidosis [Recovered/Resolved]
  - Pneumonia pneumococcal [Recovered/Resolved]
  - Dyspnoea [Recovered/Resolved]
  - Enterobacter pneumonia [Unknown]
  - Enterobacter infection [Unknown]

NARRATIVE: CASE EVENT DATE: 20220801
